FAERS Safety Report 6440761-3 (Version None)
Quarter: 2009Q4

REPORT INFORMATION
  Report Type: 
  Country: None (occurrence: None)
  Receive Date: 20091116
  Receipt Date: 20090930
  Transmission Date: 20100525
  Serious: Yes (Hospitalization, Other)
  Sender: FDA-Public Use
  Company Number: IL-RANBAXY-2009US-22073

PATIENT

DRUGS (2)
  1. NITROFURANTOIN MONOHYDRATE/MACROCRYSTALS [Suspect]
     Indication: URINARY TRACT INFECTION
     Dosage: UNK, UNK
     Route: 065
  2. OFLOXACIN [Suspect]
     Indication: DRUG USE FOR UNKNOWN INDICATION
     Route: 065

REACTIONS (14)
  - BLOOD CREATINE PHOSPHOKINASE INCREASED [None]
  - BLOOD CREATININE INCREASED [None]
  - BLOOD UREA INCREASED [None]
  - CULTURE URINE POSITIVE [None]
  - DYSURIA [None]
  - EOSINOPHILIA [None]
  - ESCHERICHIA INFECTION [None]
  - HEPATIC ENZYME INCREASED [None]
  - HEPATITIS [None]
  - LEUKOCYTURIA [None]
  - MICTURITION URGENCY [None]
  - POLLAKIURIA [None]
  - PYREXIA [None]
  - TUBULOINTERSTITIAL NEPHRITIS [None]
